FAERS Safety Report 11531831 (Version 1)
Quarter: 2015Q3

REPORT INFORMATION
  Report Type: Report from Study
  Country: US (occurrence: US)
  Receive Date: 20150921
  Receipt Date: 20150921
  Transmission Date: 20151125
  Serious: Yes (Other)
  Sender: FDA-Public Use
  Company Number: US-AMGEN-USASP2015096153

PATIENT
  Age: 53 Year
  Sex: Female

DRUGS (1)
  1. ENBREL [Suspect]
     Active Substance: ETANERCEPT
     Indication: ANKYLOSING SPONDYLITIS
     Dosage: UNK
     Route: 065
     Dates: start: 2013

REACTIONS (12)
  - Tooth abscess [Unknown]
  - Infection susceptibility increased [Unknown]
  - Dental caries [Unknown]
  - Infection [Unknown]
  - Candida infection [Unknown]
  - Fungal infection [Unknown]
  - Dry mouth [Unknown]
  - Pain [Unknown]
  - Urinary tract infection [Unknown]
  - Dysphonia [Unknown]
  - Asthma [Unknown]
  - Vulvovaginal mycotic infection [Unknown]
